FAERS Safety Report 20182591 (Version 1)
Quarter: 2021Q4

REPORT INFORMATION
  Report Type: Spontaneous
  Country: NL (occurrence: NL)
  Receive Date: 20211214
  Receipt Date: 20211214
  Transmission Date: 20220304
  Serious: Yes (Hospitalization, Other)
  Sender: FDA-Public Use
  Company Number: NL-NOVARTISPH-NVSC2020NL208893

PATIENT
  Age: 9 Year

DRUGS (2)
  1. MEKINIST [Suspect]
     Active Substance: TRAMETINIB DIMETHYL SULFOXIDE
     Indication: Astrocytoma
     Dosage: 0.03 MG/KG
     Route: 065
     Dates: start: 202005
  2. TEMOZOLOMIDE [Concomitant]
     Active Substance: TEMOZOLOMIDE
     Indication: Product used for unknown indication
     Dosage: 200 MG/M2 (200-150 MG/M2 28 DAYS)
     Route: 065

REACTIONS (8)
  - Somnolence [Unknown]
  - Weight decreased [Unknown]
  - Bradycardia [Unknown]
  - Headache [Unknown]
  - Vomiting [Unknown]
  - Astrocytoma [Unknown]
  - Malignant neoplasm progression [Unknown]
  - Product use in unapproved indication [Unknown]
